FAERS Safety Report 8585761-2 (Version None)
Quarter: 2012Q3

REPORT INFORMATION
  Report Type: 
  Country: None (occurrence: None)
  Receive Date: 20120810
  Receipt Date: 20120731
  Transmission Date: 20120928
  Serious: Yes (Hospitalization)
  Sender: FDA-Public Use
  Company Number: US-BAYER-2012-045793

PATIENT
  Age: 44 Year
  Sex: Female

DRUGS (15)
  1. YAZ [Suspect]
  2. SYNTHROID [Concomitant]
     Dosage: 50 ?G, UNK
     Dates: start: 20080906
  3. MELOXICAM [Concomitant]
     Dosage: 15 MG, UNK
     Dates: start: 20080729
  4. HEMORRHOIDAL HC [WITH BI+ RESORCINATE,BI+ SUBGALL,ZNO, AND OTHERS] [Concomitant]
     Dosage: 25 MG, UNK
     Dates: start: 20080626
  5. METHYLPREDNISOLONE [Concomitant]
     Dosage: 4 MG, UNK
     Dates: start: 20080626, end: 20080729
  6. POTASSIUM CHLORIDE [Concomitant]
     Dosage: UNK
     Dates: start: 20080918
  7. POTASSIUM CHLORIDE [Concomitant]
     Dosage: 10 MEQ, EVERY DAY
     Dates: start: 20080815
  8. LASIX [Concomitant]
     Dosage: 20 MG, EVERY DAY
  9. FLEXERIL [Concomitant]
  10. ACETAMINOPHEN W/ PROPOXYPHENE HCL [Concomitant]
     Dosage: 100-650 MG
     Dates: start: 20080909
  11. YASMIN [Suspect]
     Indication: CONTRACEPTION
  12. PANTOPRAZOLE SODIUM [Concomitant]
     Dosage: 40 MG, UNK
     Dates: start: 20080626
  13. DARVOCET-N 50 [Concomitant]
     Dosage: UNK UNK, PRN
     Dates: start: 20080918
  14. FUROSEMIDE [Concomitant]
     Dosage: 40 MG, UNK
     Dates: start: 20080815
  15. SYNTHROID [Concomitant]
     Dosage: 0.5 ?G, DAILY
     Dates: start: 20080918

REACTIONS (7)
  - ANHEDONIA [None]
  - PAIN [None]
  - QUALITY OF LIFE DECREASED [None]
  - ANXIETY [None]
  - FEAR [None]
  - INJURY [None]
  - DEEP VEIN THROMBOSIS [None]
